FAERS Safety Report 23529916 (Version 3)
Quarter: 2024Q1

REPORT INFORMATION
  Report Type: Spontaneous
  Country: FR (occurrence: FR)
  Receive Date: 20240216
  Receipt Date: 20240314
  Transmission Date: 20240410
  Serious: Yes (Life-Threatening, Hospitalization)
  Sender: FDA-Public Use
  Company Number: FR-SUN PHARMACEUTICAL INDUSTRIES LTD-2024RR-431422

PATIENT
  Sex: Female
  Weight: 106 kg

DRUGS (6)
  1. ODOMZO [Suspect]
     Active Substance: SONIDEGIB
     Indication: Basal cell carcinoma
     Dosage: 200 MILLIGRAM, DAILY
     Route: 048
     Dates: start: 20230620, end: 20240129
  2. ODOMZO [Suspect]
     Active Substance: SONIDEGIB
     Indication: Basal cell naevus syndrome
     Dosage: 200 MILLIGRAM, QOD
     Route: 048
     Dates: start: 20240130, end: 20240202
  3. VISMODEGIB [Suspect]
     Active Substance: VISMODEGIB
     Indication: Product used for unknown indication
     Dosage: UNK
     Route: 065
  4. COMIRNATY (RAXTOZINAMERAN) [Suspect]
     Active Substance: RAXTOZINAMERAN
     Indication: Product used for unknown indication
     Dosage: UNK
     Route: 065
     Dates: start: 20231117, end: 20231117
  5. NICARDIPINE [Concomitant]
     Active Substance: NICARDIPINE
     Indication: Hypertension
     Dosage: IF NECESSARY
     Route: 065
     Dates: start: 2015
  6. FUROSEMIDE [Concomitant]
     Active Substance: FUROSEMIDE
     Indication: Respiratory depression
     Dosage: UNK
     Route: 042

REACTIONS (11)
  - Cardiac failure [Recovered/Resolved with Sequelae]
  - Ejection fraction decreased [Recovered/Resolved with Sequelae]
  - Diabetes insipidus [Recovered/Resolved with Sequelae]
  - Nausea [Unknown]
  - Decreased appetite [Unknown]
  - Muscle spasms [Unknown]
  - Alopecia [Unknown]
  - Cell death [Unknown]
  - Hyperleukocytosis [Not Recovered/Not Resolved]
  - Asthenia [Unknown]
  - Concomitant disease aggravated [Not Recovered/Not Resolved]
